FAERS Safety Report 6987543-1 (Version None)
Quarter: 2010Q3

REPORT INFORMATION
  Report Type: 
  Country: None (occurrence: None)
  Receive Date: 20100916
  Receipt Date: 20100903
  Transmission Date: 20110219
  Serious: Yes (Other)
  Sender: FDA-Public Use
  Company Number: US-PFIZER INC-2010111844

PATIENT
  Sex: Female
  Weight: 57.143 kg

DRUGS (8)
  1. CELEBREX [Suspect]
     Indication: INTERVERTEBRAL DISC PROTRUSION
     Dosage: 200 MG, 1X/DAY
     Route: 048
     Dates: start: 20100301
  2. CELEBREX [Suspect]
     Indication: ARTHRALGIA
  3. CELEBREX [Suspect]
     Indication: BACK PAIN
  4. TRAMADOL HYDROCHLORIDE [Suspect]
     Indication: PAIN
     Dosage: 50 MG, UNK
     Route: 048
     Dates: start: 20100301
  5. DARVOCET [Suspect]
     Indication: PAIN
     Dosage: 100/650 MG
     Route: 048
     Dates: start: 20100301
  6. SOMA [Suspect]
     Indication: MUSCLE SPASMS
     Dosage: 350 MG, 3X/DAY
     Route: 048
     Dates: start: 20100301
  7. CALCIUM [Concomitant]
     Dosage: UNK
     Route: 048
     Dates: start: 20090601
  8. VITAMIN D [Concomitant]
     Dosage: UNK
     Route: 048
     Dates: start: 20090601

REACTIONS (3)
  - DRUG INTOLERANCE [None]
  - HEADACHE [None]
  - RASH MACULO-PAPULAR [None]
